FAERS Safety Report 9817979 (Version 1)
Quarter: 2013Q4

REPORT INFORMATION
  Report Type: Spontaneous
  Country: US (occurrence: None)
  Receive Date: 20131223
  Receipt Date: 20131223
  Transmission Date: 20140711
  Serious: No
  Sender: FDA-Public Use
  Company Number: 219218

PATIENT
  Age: 77 Year
  Sex: Male

DRUGS (8)
  1. PICATO [Suspect]
     Route: 061
     Dates: start: 20120924
  2. METOPROLOL [Concomitant]
  3. DYAZIDE [Concomitant]
  4. SIMVASTATIN [Concomitant]
  5. HYTRIN (TERAZOSIN HYDROCHLORIDE) [Concomitant]
  6. ASPIRIN (ACETYLSALICYLIC ACID) [Concomitant]
  7. COMBIGAN [Concomitant]
  8. XALATAN [Concomitant]

REACTIONS (3)
  - Application site erythema [None]
  - Application site discomfort [None]
  - Drug administered at inappropriate site [None]
